FAERS Safety Report 5444735-0 (Version None)
Quarter: 2007Q3

REPORT INFORMATION
  Report Type: 
  Country: None (occurrence: None)
  Receive Date: 20070906
  Receipt Date: 20070226
  Transmission Date: 20080115
  Serious: No
  Sender: FDA-Public Use
  Company Number: A0640952A

PATIENT
  Age: 66 Year
  Sex: Female

DRUGS (3)
  1. REQUIP [Suspect]
     Indication: RESTLESS LEGS SYNDROME
     Route: 048
     Dates: start: 20070223, end: 20070223
  2. MYSOLINE [Concomitant]
  3. PRAVACHOL [Concomitant]

REACTIONS (4)
  - ANXIETY [None]
  - FEELING JITTERY [None]
  - INSOMNIA [None]
  - RESTLESSNESS [None]
